FAERS Safety Report 24373175 (Version 1)
Quarter: 2024Q3

REPORT INFORMATION
  Report Type: Spontaneous
  Country: US (occurrence: US)
  Receive Date: 20240927
  Receipt Date: 20240927
  Transmission Date: 20241017
  Serious: No
  Sender: Thea Pharma
  Company Number: US-THEA-2023002320

PATIENT

DRUGS (2)
  1. BETIMOL [Suspect]
     Active Substance: TIMOLOL
     Indication: Product used for unknown indication
     Route: 047
  2. IBRANCE [Concomitant]
     Active Substance: PALBOCICLIB
     Indication: Bone cancer

REACTIONS (1)
  - Sinus bradycardia [Unknown]
